FAERS Safety Report 5423171-7 (Version None)
Quarter: 2007Q3

REPORT INFORMATION
  Report Type: 
  Country: None (occurrence: None)
  Receive Date: 20070730
  Receipt Date: 20070111
  Transmission Date: 20080115
  Serious: Yes (Hospitalization, Other)
  Sender: FDA-Public Use
  Company Number: 200616454BWH

PATIENT
  Age: 31 Year
  Sex: Female

DRUGS (3)
  1. AVELOX [Suspect]
     Indication: SINUSITIS
     Dosage: ONCE, ORAL
     Route: 048
     Dates: start: 20061030
  2. YAZ [Concomitant]
  3. LEXAPRO [Concomitant]

REACTIONS (6)
  - ANAPHYLACTIC REACTION [None]
  - DYSPNOEA [None]
  - GENERALISED ERYTHEMA [None]
  - LIP SWELLING [None]
  - PHARYNGEAL OEDEMA [None]
  - SWELLING FACE [None]
